FAERS Safety Report 4896359-1 (Version None)
Quarter: 2006Q1

REPORT INFORMATION
  Report Type: 
  Country: None (occurrence: None)
  Receive Date: 20060126
  Receipt Date: 20060123
  Transmission Date: 20060701
  Serious: Yes (Death, Other)
  Sender: FDA-Public Use
  Company Number: 2006-00102

PATIENT
  Age: 54 Year
  Sex: Male
  Weight: 97 kg

DRUGS (14)
  1. VELCADE [Suspect]
     Indication: ACUTE MYELOID LEUKAEMIA
     Dosage: 2.00 MG, 2/WEEK, INTRAVENOUS
     Route: 042
     Dates: start: 20060110, end: 20060116
  2. CYTARABINE [Suspect]
     Indication: ACUTE MYELOID LEUKAEMIA
     Dosage: 1000.00 MG/M2
     Dates: start: 20060110
  3. DAUNORUBICIN HCL [Suspect]
     Indication: ACUTE MYELOID LEUKAEMIA
     Dosage: 60.00 MG/M2
     Dates: start: 20060110
  4. CEFUROXIME [Concomitant]
  5. FUROSEMIDE [Concomitant]
  6. ALLOPURINOL [Concomitant]
  7. HEPARIN [Concomitant]
  8. CIPROXIN (CIPROFLOXACIN) TABLET [Concomitant]
  9. COLISTIN SULFATE (COLISTIN SULFATE) [Concomitant]
  10. FLUCONAZOLE [Concomitant]
  11. METHYLCELLULOSE (METHYLCELLULOSE) [Concomitant]
  12. SODIUM FLUORIDE (SODIUM FLUORIDE) [Concomitant]
  13. SODIUM CHLORIDE (SODIUM CHLORIDE) INFUSION [Concomitant]
  14. BENZYLPENICILLIN SODIUM (BENZYLPENICILLIN SODIUM) INJECTION [Concomitant]

REACTIONS (16)
  - ACUTE RESPIRATORY DISTRESS SYNDROME [None]
  - ACUTE RESPIRATORY FAILURE [None]
  - ASPARTATE AMINOTRANSFERASE INCREASED [None]
  - BLOOD CHLORIDE INCREASED [None]
  - BLOOD LACTATE DEHYDROGENASE INCREASED [None]
  - BLOOD POTASSIUM DECREASED [None]
  - C-REACTIVE PROTEIN INCREASED [None]
  - DIARRHOEA [None]
  - FATIGUE [None]
  - HAEMOGLOBIN DECREASED [None]
  - PLATELET COUNT DECREASED [None]
  - PULMONARY OEDEMA [None]
  - PYREXIA [None]
  - SKIN TOXICITY [None]
  - SUDDEN CARDIAC DEATH [None]
  - WHITE BLOOD CELL COUNT DECREASED [None]
